FAERS Safety Report 15644905 (Version 1)
Quarter: 2018Q4

REPORT INFORMATION
  Report Type: Report from Study
  Country: US (occurrence: US)
  Receive Date: 20181121
  Receipt Date: 20181121
  Transmission Date: 20190205
  Serious: Yes (Other)
  Sender: FDA-Public Use
  Company Number: US-GLAXOSMITHKLINE-US2018GSK209855

PATIENT
  Age: 48 Year
  Sex: Female

DRUGS (1)
  1. BELIMUMAB [Suspect]
     Active Substance: BELIMUMAB
     Indication: SYSTEMIC LUPUS ERYTHEMATOSUS
     Dosage: UNK, CYC
     Route: 042

REACTIONS (7)
  - Systemic lupus erythematosus [Unknown]
  - Therapeutic response unexpected [Unknown]
  - Headache [Unknown]
  - Asthenia [Unknown]
  - Pyrexia [Unknown]
  - Fatigue [Recovering/Resolving]
  - Insomnia [Recovered/Resolved]
